FAERS Safety Report 10660283 (Version 3)
Quarter: 2016Q3

REPORT INFORMATION
  Report Type: Report from Study
  Country: CZ (occurrence: CZ)
  Receive Date: 20141217
  Receipt Date: 20160715
  Transmission Date: 20161109
  Serious: Yes (Death, Life-Threatening, Hospitalization)
  Sender: FDA-Public Use
  Company Number: CZ-AMGEN-2014-2312

PATIENT
  Age: 82 Year
  Sex: Male
  Weight: 70 kg

DRUGS (11)
  1. PARALEN [Concomitant]
     Active Substance: ACETAMINOPHEN
     Indication: SPINAL PAIN
     Dosage: 500 MG, QD
     Route: 048
     Dates: start: 20141007, end: 20141007
  2. PRESID [Concomitant]
     Indication: HYPERTENSION
     Dosage: 5 MG, QD
     Route: 048
     Dates: end: 20141030
  3. ZALDIAR [Concomitant]
     Active Substance: ACETAMINOPHEN\TRAMADOL HYDROCHLORIDE
     Indication: SPINAL PAIN
     Dosage: 75 MG, AS NECESSARY
     Route: 048
     Dates: start: 20141007, end: 20141030
  4. FRAXIPARINE [Concomitant]
     Active Substance: NADROPARIN CALCIUM
     Indication: PROPHYLAXIS
     Dosage: 0.3-0.6 ML
     Route: 058
     Dates: start: 20141004, end: 20141030
  5. FRAXIPARINE [Concomitant]
     Active Substance: NADROPARIN CALCIUM
     Indication: TUMOUR LYSIS SYNDROME
  6. PREDNISONE. [Suspect]
     Active Substance: PREDNISONE
     Indication: PLASMA CELL MYELOMA
     Dosage: 110 MG, PER CHEMO REGIM
     Route: 048
     Dates: start: 20141021, end: 20141022
  7. CARFILZOMIB [Suspect]
     Active Substance: CARFILZOMIB
     Indication: PLASMA CELL MYELOMA
     Dosage: 20 MG/M2, PER CHEMO REGIM
     Route: 042
     Dates: start: 20141020, end: 20141020
  8. ENAP [Concomitant]
     Active Substance: ENALAPRIL
     Indication: HYPERTENSION
     Dosage: 5 MG, QD
     Route: 048
     Dates: end: 20141030
  9. HELICID [Concomitant]
     Indication: PROPHYLAXIS
     Dosage: 20 MG, UNK
     Route: 048
     Dates: start: 20141002, end: 20141030
  10. TRALGIT [Concomitant]
     Active Substance: TRAMADOL
     Indication: SPINAL PAIN
     Dosage: 100 MG, AS NECESSARY
     Route: 048
     Dates: start: 20141002, end: 20141007
  11. MELPHALAN [Suspect]
     Active Substance: MELPHALAN
     Indication: PLASMA CELL MYELOMA
     Dosage: 12 MG, PER CHEMO REGIM
     Route: 048
     Dates: start: 20141021, end: 20141022

REACTIONS (2)
  - Cardiac failure [Fatal]
  - Tumour lysis syndrome [Recovered/Resolved with Sequelae]

NARRATIVE: CASE EVENT DATE: 20141021
